FAERS Safety Report 6197872-X (Version None)
Quarter: 2009Q2

REPORT INFORMATION
  Report Type: 
  Country: None (occurrence: None)
  Receive Date: 20090521
  Receipt Date: 20090508
  Transmission Date: 20091009
  Serious: Yes (Hospitalization, Other)
  Sender: FDA-Public Use
  Company Number: ES-ELI_LILLY_AND_COMPANY-ES200905002132

PATIENT
  Age: 76 Year
  Sex: Female

DRUGS (4)
  1. FORTEO [Suspect]
     Indication: OSTEOPOROSIS
     Dosage: 20 UG, DAILY (1/D)
     Route: 058
     Dates: start: 20071201, end: 20090501
  2. SINTROM [Concomitant]
     Indication: ARRHYTHMIA
     Dates: start: 20050101
  3. ENALAPRIL MALEATE [Concomitant]
     Indication: HYPERTENSION
  4. OMEPRAZOL [Concomitant]
     Indication: GASTRIC DISORDER

REACTIONS (8)
  - ANGINA PECTORIS [None]
  - ARRHYTHMIA [None]
  - CARDIAC FAILURE [None]
  - DYSPNOEA [None]
  - MALAISE [None]
  - MUSCULOSKELETAL DISCOMFORT [None]
  - NASOPHARYNGITIS [None]
  - PHARYNGITIS [None]
